FAERS Safety Report 8589269-X (Version None)
Quarter: 2012Q3

REPORT INFORMATION
  Report Type: 
  Country: None (occurrence: None)
  Receive Date: 20120813
  Receipt Date: 20120803
  Transmission Date: 20120928
  Serious: Yes (Death, Life-Threatening, Hospitalization, Disabling, Other)
  Sender: FDA-Public Use
  Company Number: PH-SANOFI-AVENTIS-2011SA075588

PATIENT
  Age: 68 Year
  Sex: Female
  Weight: 52 kg

DRUGS (12)
  1. DOCETAXEL [Suspect]
     Dosage: FORM: VIAL
     Route: 042
     Dates: start: 20101026, end: 20101116
  2. MUCOSTA [Concomitant]
     Dates: start: 20101109, end: 20101111
  3. DOCETAXEL [Suspect]
     Dosage: FORM: VIAL
     Route: 042
     Dates: start: 20101026, end: 20101116
  4. TINZAPARIN [Concomitant]
     Dosage: DOSE:10000 UNIT(S)
     Dates: start: 20101105, end: 20101106
  5. VITAMIN K TAB [Concomitant]
     Dates: start: 20101107, end: 20101116
  6. OMEPRAZOLE [Concomitant]
     Dates: start: 20101104, end: 20101123
  7. TRANEXAMIC ACID [Concomitant]
     Dates: start: 20101114, end: 20101123
  8. TRASTUZUMAB [Suspect]
     Dosage: VIALDOSE: 420, UNITS NOT REPORTED
     Route: 042
     Dates: start: 20101026, end: 20101116
  9. CIPROFLOXACIN [Concomitant]
     Dates: start: 20101026, end: 20101102
  10. FLUCONAZOLE [Concomitant]
     Dates: start: 20101103, end: 20101109
  11. IMIPENEM [Concomitant]
     Dates: start: 20101119, end: 20101123
  12. IMIPENEM [Concomitant]
     Dates: start: 20101110

REACTIONS (5)
  - PNEUMONIA [None]
  - NEUTROPENIA [None]
  - GASTROINTESTINAL ULCER [None]
  - FEBRILE NEUTROPENIA [None]
  - HEPATIC FAILURE [None]
